FAERS Safety Report 25451517 (Version 4)
Quarter: 2025Q3

REPORT INFORMATION
  Report Type: Report from Study
  Country: ZA (occurrence: ZA)
  Receive Date: 20250618
  Receipt Date: 20250714
  Transmission Date: 20251021
  Serious: Yes (Other)
  Sender: NOVARTIS
  Company Number: ZA-002147023-NVSC2025ZA096613

PATIENT
  Age: 56 Year

DRUGS (4)
  1. INCLISIRAN [Suspect]
     Active Substance: INCLISIRAN
     Indication: Hyperlipidaemia
     Route: 065
     Dates: start: 20241017
  2. INCLISIRAN [Suspect]
     Active Substance: INCLISIRAN
     Route: 058
     Dates: start: 20241210
  3. INCLISIRAN [Suspect]
     Active Substance: INCLISIRAN
     Route: 065
     Dates: start: 20250117
  4. INCLISIRAN [Suspect]
     Active Substance: INCLISIRAN
     Route: 065
     Dates: start: 20250708

REACTIONS (5)
  - Blood creatinine decreased [Unknown]
  - Blood chloride decreased [Unknown]
  - Blood sodium decreased [Unknown]
  - Injection site pain [Unknown]
  - Blood cholesterol increased [Recovering/Resolving]
